FAERS Safety Report 4346571-5 (Version None)
Quarter: 2004Q1

REPORT INFORMATION
  Report Type: 
  Country: None (occurrence: None)
  Receive Date: 20040325
  Receipt Date: 20040302
  Transmission Date: 20041129
  Serious: No
  Sender: FDA-Public Use
  Company Number: USA040259058

PATIENT
  Age: 69 Year
  Sex: Male
  Weight: 74 kg

DRUGS (7)
  1. FORTEO [Suspect]
     Indication: OSTEOMALACIA
     Dosage: 20 UG/DAY
     Dates: start: 20040205, end: 20040208
  2. FLUTICASONE PROPIONATE [Concomitant]
  3. VITAMIN D [Concomitant]
  4. CALCIUM CARBONATE [Concomitant]
  5. PRILOSEC [Concomitant]
  6. DARVOCET-N 100 [Concomitant]
  7. ALTACE [Concomitant]

REACTIONS (2)
  - HAEMORRHAGE [None]
  - SCROTAL ABSCESS [None]
